FAERS Safety Report 5186543-4 (Version None)
Quarter: 2006Q4

REPORT INFORMATION
  Report Type: 
  Country: None (occurrence: None)
  Receive Date: 20061220
  Receipt Date: 20061212
  Transmission Date: 20070319
  Serious: Yes (Other)
  Sender: FDA-Public Use
  Company Number: IT-ABBOTT-06P-083-0353125-00

PATIENT
  Age: 8 Year
  Sex: Male

DRUGS (3)
  1. VALPROATE SODIUM [Suspect]
     Indication: ELECTROENCEPHALOGRAM ABNORMAL
     Route: 065
  2. VALPROATE SODIUM [Suspect]
  3. CLOBAZAM [Concomitant]
     Indication: EPILEPSY

REACTIONS (2)
  - CEREBRAL ATROPHY [None]
  - MENTAL IMPAIRMENT [None]
